FAERS Safety Report 9768873 (Version 1)
Quarter: 2013Q4

REPORT INFORMATION
  Report Type: Spontaneous
  Country: US (occurrence: None)
  Receive Date: 20131211
  Receipt Date: 20131211
  Transmission Date: 20140711
  Serious: Yes (Other)
  Sender: FDA-Public Use
  Company Number: 99980

PATIENT
  Age: 63 Year
  Sex: Male
  Weight: 80.9 kg

DRUGS (2)
  1. DEFLEX [Suspect]
  2. LIBERTY CYCLER CASSETTE AND LIBERTY CYCLER [Concomitant]

REACTIONS (6)
  - Back pain [None]
  - Nausea [None]
  - Wrong technique in drug usage process [None]
  - Peritonitis bacterial [None]
  - Staphylococcal infection [None]
  - Peritoneal dialysis complication [None]
